FAERS Safety Report 13137707 (Version 3)
Quarter: 2017Q1

REPORT INFORMATION
  Report Type: Spontaneous
  Country: US (occurrence: US)
  Receive Date: 20170123
  Receipt Date: 20170123
  Transmission Date: 20170428
  Serious: No
  Sender: FDA-Public Use
  Company Number: US-UNITED THERAPEUTICS-UNT-2016-013321

PATIENT
  Age: 65 Year
  Sex: Female
  Weight: 102.49 kg

DRUGS (1)
  1. TYVASO [Suspect]
     Active Substance: TREPROSTINIL
     Indication: PULMONARY HYPERTENSION
     Dosage: 18-54 MICROGRAMS, QID
     Dates: start: 20160818

REACTIONS (2)
  - Inappropriate schedule of drug administration [None]
  - Dizziness [Recovered/Resolved]

NARRATIVE: CASE EVENT DATE: 20160818
